FAERS Safety Report 4964439-8 (Version None)
Quarter: 2006Q1

REPORT INFORMATION
  Report Type: 
  Country: None (occurrence: None)
  Receive Date: 20060331
  Receipt Date: 20060317
  Transmission Date: 20060701
  Serious: Yes (Other)
  Sender: FDA-Public Use
  Company Number: 2006000658

PATIENT
  Age: 72 Year
  Sex: Male

DRUGS (2)
  1. TARCEVA [Suspect]
     Indication: LUNG NEOPLASM MALIGNANT
     Dosage: ORAL
     Route: 048
  2. ACENOCOUMAROL (ACENOCOUMAROL) [Concomitant]

REACTIONS (3)
  - ERYTHEMA [None]
  - SCROTAL OEDEMA [None]
  - SKIN ULCER [None]
